FAERS Safety Report 18169530 (Version 1)
Quarter: 2020Q3

REPORT INFORMATION
  Report Type: Spontaneous
  Country: US (occurrence: US)
  Receive Date: 20200819
  Receipt Date: 20200819
  Transmission Date: 20201103
  Serious: No
  Sender: FDA-Public Use
  Company Number: None

PATIENT
  Age: 66 Year
  Sex: Male
  Weight: 81.65 kg

DRUGS (9)
  1. ABIRATERONE ACETATE. [Suspect]
     Active Substance: ABIRATERONE ACETATE
     Indication: TESTIS CANCER
     Route: 048
     Dates: start: 20181213, end: 20200819
  2. ALLOPURINOL. [Concomitant]
     Active Substance: ALLOPURINOL
  3. METFORMIN [Concomitant]
     Active Substance: METFORMIN HYDROCHLORIDE
  4. LUPRON DEPOT [Concomitant]
     Active Substance: LEUPROLIDE ACETATE
  5. NAPROXEN. [Concomitant]
     Active Substance: NAPROXEN
  6. ZYTIGA [Concomitant]
     Active Substance: ABIRATERONE ACETATE
  7. TAMSULOSIN [Concomitant]
     Active Substance: TAMSULOSIN
  8. PREDNISONE. [Concomitant]
     Active Substance: PREDNISONE
  9. ABIRATERONE ACETATE. [Suspect]
     Active Substance: ABIRATERONE ACETATE
     Indication: PROSTATE CANCER
     Route: 048
     Dates: start: 20181213, end: 20200819

REACTIONS (1)
  - Disease progression [None]

NARRATIVE: CASE EVENT DATE: 20200819
